FAERS Safety Report 5174328-4 (Version None)
Quarter: 2006Q4

REPORT INFORMATION
  Report Type: 
  Country: None (occurrence: None)
  Receive Date: 20061214
  Receipt Date: 20060509
  Transmission Date: 20070319
  Serious: Yes (Hospitalization)
  Sender: FDA-Public Use
  Company Number: US-ELI_LILLY_AND_COMPANY-US200609001814

PATIENT
  Age: 51 Year
  Sex: Female
  Weight: 104.31 kg

DRUGS (2)
  1. QUETIAPINE FUMARATE [Concomitant]
     Dates: start: 20020101
  2. ZYPREXA [Suspect]
     Indication: DEPRESSION
     Dosage: 200 MG, UNK
     Route: 065
     Dates: start: 20010101, end: 20040101

REACTIONS (5)
  - CONDITION AGGRAVATED [None]
  - DIABETES MELLITUS [None]
  - HYPERTENSION [None]
  - MYOCARDIAL INFARCTION [None]
  - PRESCRIBED OVERDOSE [None]
